FAERS Safety Report 15475966 (Version 1)
Quarter: 2018Q4

REPORT INFORMATION
  Report Type: Spontaneous
  Country: DE (occurrence: DE)
  Receive Date: 20181009
  Receipt Date: 20181009
  Transmission Date: 20190205
  Serious: Yes (Hospitalization, Other)
  Sender: FDA-Public Use
  Company Number: PHHY2018DE118331

PATIENT
  Sex: Female

DRUGS (4)
  1. LUMINAL [Suspect]
     Active Substance: PHENOBARBITAL SODIUM
     Indication: PRODUCT USED FOR UNKNOWN INDICATION
     Route: 065
  2. LAMOTRIGINE. [Suspect]
     Active Substance: LAMOTRIGINE
     Indication: PRODUCT USED FOR UNKNOWN INDICATION
     Dosage: UNK
     Route: 065
  3. LUMINAL [Suspect]
     Active Substance: PHENOBARBITAL SODIUM
     Dosage: 150 MG, BID (1/2 TABLET IN THE MORNING, 1 TABLET IN THE EVENING)
     Route: 065
  4. OSPOLOT [Suspect]
     Active Substance: SULTHIAME
     Indication: PRODUCT USED FOR UNKNOWN INDICATION
     Route: 065

REACTIONS (8)
  - Drug interaction [Unknown]
  - Petit mal epilepsy [Not Recovered/Not Resolved]
  - Urosepsis [Recovered/Resolved]
  - Intestinal dilatation [Not Recovered/Not Resolved]
  - Neurogenic bladder [Unknown]
  - Insomnia [Unknown]
  - Decreased appetite [Unknown]
  - Urinary tract infection [Not Recovered/Not Resolved]
